FAERS Safety Report 11794162 (Version 4)
Quarter: 2016Q2

REPORT INFORMATION
  Report Type: Spontaneous
  Country: US (occurrence: US)
  Receive Date: 20151202
  Receipt Date: 20160519
  Transmission Date: 20160815
  Serious: Yes (Other)
  Sender: FDA-Public Use
  Company Number: US-MDT-ADR-2015-02260

PATIENT
  Age: 55 Year
  Sex: Male

DRUGS (24)
  1. ALBUTEROL. [Suspect]
     Active Substance: ALBUTEROL
  2. SENOKOT [Suspect]
     Active Substance: SENNOSIDES
  3. GLUCOTROL [Suspect]
     Active Substance: GLIPIZIDE
  4. HYDRODIURIL [Suspect]
     Active Substance: HYDROCHLOROTHIAZIDE
  5. AMBIEN [Suspect]
     Active Substance: ZOLPIDEM TARTRATE
  6. BOTOX [Suspect]
     Active Substance: ONABOTULINUMTOXINA
  7. PHENERGAN [Suspect]
     Active Substance: PROMETHAZINE HYDROCHLORIDE
  8. HUMALOG [Suspect]
     Active Substance: INSULIN LISPRO
  9. NORVASC [Suspect]
     Active Substance: AMLODIPINE BESYLATE
  10. LYRICA [Suspect]
     Active Substance: PREGABALIN
  11. LIORESAL [Suspect]
     Active Substance: BACLOFEN
     Dosage: 104.41MCG/DAY
     Route: 037
     Dates: start: 20151103
  12. NEURONTIN [Suspect]
     Active Substance: GABAPENTIN
  13. VITAMIN B12 [Suspect]
     Active Substance: CYANOCOBALAMIN
  14. TECFIDERA [Suspect]
     Active Substance: DIMETHYL FUMARATE
  15. FLUOXETINE [Suspect]
     Active Substance: FLUOXETINE HYDROCHLORIDE
  16. VITAMIN D [Suspect]
     Active Substance: CHOLECALCIFEROL
  17. FISH OIL [Suspect]
     Active Substance: FISH OIL
  18. CLOTRIMAZOLE CREAM [Suspect]
     Active Substance: CLOTRIMAZOLE
  19. ADDERALL XR [Suspect]
     Active Substance: AMPHETAMINE ASPARTATE\AMPHETAMINE SULFATE\DEXTROAMPHETAMINE SACCHARATE\DEXTROAMPHETAMINE SULFATE
  20. PRAVACHOL [Suspect]
     Active Substance: PRAVASTATIN SODIUM
  21. KENALOG [Suspect]
     Active Substance: TRIAMCINOLONE ACETONIDE
  22. ASPIRIN. [Suspect]
     Active Substance: ASPIRIN
  23. METFORMIN [Suspect]
     Active Substance: METFORMIN HYDROCHLORIDE
  24. VIAGRA [Suspect]
     Active Substance: SILDENAFIL CITRATE

REACTIONS (6)
  - Myalgia [Unknown]
  - Underdose [Unknown]
  - Headache [Unknown]
  - Urinary retention [Unknown]
  - Muscle spasticity [Unknown]
  - Muscle spasticity [Unknown]

NARRATIVE: CASE EVENT DATE: 20151127
